FAERS Safety Report 10153193 (Version 1)
Quarter: 2014Q2

REPORT INFORMATION
  Report Type: Other
  Country: BR (occurrence: BR)
  Receive Date: 20140505
  Receipt Date: 20140505
  Transmission Date: 20141212
  Serious: Yes (Other)
  Sender: FDA-Public Use
  Company Number: BR-SHIRE-BR201401649

PATIENT
  Age: 9 Year
  Sex: Male
  Weight: 27.2 kg

DRUGS (1)
  1. ELAPRASE [Suspect]
     Indication: MUCOPOLYSACCHARIDOSIS
     Dosage: UNK (2-3 VIALS), UNKNOWN
     Route: 041
     Dates: start: 2011

REACTIONS (4)
  - Abasia [Not Recovered/Not Resolved]
  - Asthenia [Unknown]
  - Fall [Recovered/Resolved]
  - Oropharyngeal pain [Recovered/Resolved]
